FAERS Safety Report 12327270 (Version 3)
Quarter: 2017Q2

REPORT INFORMATION
  Report Type: Report from Study
  Country: CN (occurrence: CN)
  Receive Date: 20160503
  Receipt Date: 20170511
  Transmission Date: 20170830
  Serious: Yes (Other)
  Sender: FDA-Public Use
  Company Number: PHHY2016CN058402

PATIENT
  Age: 36 Year
  Sex: Female

DRUGS (153)
  1. MYFORTIC [Suspect]
     Active Substance: MYCOPHENOLATE SODIUM
     Dosage: 720 MG, QD
     Route: 065
     Dates: start: 20160403, end: 20160416
  2. TACROLIMUS. [Suspect]
     Active Substance: TACROLIMUS
     Indication: PRODUCT USED FOR UNKNOWN INDICATION
     Dosage: 1 MG, QD
     Route: 065
     Dates: start: 20160319, end: 20160319
  3. TACROLIMUS. [Suspect]
     Active Substance: TACROLIMUS
     Dosage: 7 MG, QD
     Route: 065
     Dates: start: 20160325, end: 20160325
  4. TACROLIMUS. [Suspect]
     Active Substance: TACROLIMUS
     Dosage: 8 MG, QD
     Route: 065
     Dates: start: 20160329, end: 20160404
  5. TACROLIMUS. [Suspect]
     Active Substance: TACROLIMUS
     Dosage: 5.5 MG, QD
     Route: 065
     Dates: start: 20160413, end: 20160413
  6. TACROLIMUS. [Suspect]
     Active Substance: TACROLIMUS
     Dosage: 1 MG, QD
     Route: 065
     Dates: start: 20160625, end: 20160628
  7. TACROLIMUS. [Suspect]
     Active Substance: TACROLIMUS
     Dosage: 1 MG, QD
     Route: 065
     Dates: start: 20160710, end: 20160712
  8. COENZYME [Concomitant]
     Active Substance: UBIDECARENONE
     Indication: WHITE BLOOD CELL COUNT DECREASED
     Dosage: 10 MG, QD
     Route: 042
     Dates: start: 20160319, end: 20160327
  9. LACTULOSE. [Concomitant]
     Active Substance: LACTULOSE
     Dosage: 15 ML, TID
     Route: 048
     Dates: start: 20160322, end: 20160323
  10. NIFEDIPINE. [Concomitant]
     Active Substance: NIFEDIPINE
     Dosage: 30 MG, QD
     Route: 048
     Dates: start: 20160323, end: 20160323
  11. NIFEDIPINE. [Concomitant]
     Active Substance: NIFEDIPINE
     Dosage: 30 MG, QD
     Route: 048
     Dates: start: 20160324, end: 20160327
  12. PAPAVERINE HYDROCHLORIDE. [Concomitant]
     Active Substance: PAPAVERINE HYDROCHLORIDE
     Indication: SEIZURE
     Dosage: 60 MG, Q12H
     Route: 042
     Dates: start: 20160319, end: 20160320
  13. ALPROSTADIL. [Concomitant]
     Active Substance: ALPROSTADIL
     Indication: THROMBOSIS PROPHYLAXIS
     Dosage: 10 UG, BID
     Route: 042
     Dates: start: 20160319, end: 20160327
  14. ALPROSTADIL. [Concomitant]
     Active Substance: ALPROSTADIL
     Dosage: 10 UG, BID
     Route: 042
     Dates: start: 20160327
  15. DEZOCINE [Concomitant]
     Active Substance: DEZOCINE
     Indication: ANALGESIC THERAPY
     Dosage: 5 MG, QD
     Route: 042
     Dates: start: 20160323, end: 20160323
  16. DEZOCINE [Concomitant]
     Active Substance: DEZOCINE
     Dosage: 5 MG, QD
     Route: 042
     Dates: start: 20160324, end: 20160324
  17. GANCICLOVIR. [Concomitant]
     Active Substance: GANCICLOVIR
     Indication: INFECTION
     Dosage: 1 G, TID
     Route: 048
     Dates: start: 20160422, end: 20160422
  18. GANCICLOVIR. [Concomitant]
     Active Substance: GANCICLOVIR
     Dosage: 300 MG, BID INJECTION
     Route: 042
     Dates: start: 20160701, end: 20160709
  19. CEFOPERAZONE [Concomitant]
     Active Substance: CEFOPERAZONE
     Indication: INFECTION
     Dosage: 2 G, BID
     Route: 042
     Dates: start: 20160406, end: 20160413
  20. CEFOPERAZONE [Concomitant]
     Active Substance: CEFOPERAZONE
     Dosage: 3 G, QD
     Route: 042
     Dates: start: 20160701, end: 20160705
  21. LEVOFLOXACIN. [Concomitant]
     Active Substance: LEVOFLOXACIN
     Dosage: 0.2 G, BID
     Route: 042
     Dates: start: 20160420, end: 20160423
  22. MYFORTIC [Suspect]
     Active Substance: MYCOPHENOLATE SODIUM
     Dosage: 720 MG, QD
     Route: 065
     Dates: start: 20160320, end: 20160320
  23. MYFORTIC [Suspect]
     Active Substance: MYCOPHENOLATE SODIUM
     Dosage: 900 MG, QD
     Route: 065
     Dates: start: 20160329, end: 20160329
  24. MYFORTIC [Suspect]
     Active Substance: MYCOPHENOLATE SODIUM
     Dosage: 720 MG, QD
     Route: 065
     Dates: start: 20160330, end: 20160401
  25. MYFORTIC [Suspect]
     Active Substance: MYCOPHENOLATE SODIUM
     Dosage: 720 MG, QD
     Route: 065
     Dates: start: 20160418, end: 20160421
  26. PREDNISONE. [Suspect]
     Active Substance: PREDNISONE
     Dosage: 15 MG, QD
     Route: 065
     Dates: start: 20160722, end: 20170329
  27. TACROLIMUS. [Suspect]
     Active Substance: TACROLIMUS
     Dosage: 4 MG, QD
     Route: 065
     Dates: start: 20160404, end: 20160414
  28. TACROLIMUS. [Suspect]
     Active Substance: TACROLIMUS
     Dosage: 5 MG, QD
     Route: 065
     Dates: start: 20160405, end: 20160405
  29. TACROLIMUS. [Suspect]
     Active Substance: TACROLIMUS
     Dosage: 4 MG, QD
     Route: 065
     Dates: start: 20160407, end: 20160407
  30. TACROLIMUS. [Suspect]
     Active Substance: TACROLIMUS
     Dosage: 2 MG, QD
     Route: 065
     Dates: start: 20160624, end: 20160624
  31. TACROLIMUS. [Suspect]
     Active Substance: TACROLIMUS
     Dosage: 0.5 MG, QD
     Route: 065
     Dates: start: 20160629, end: 20160702
  32. METHYLPREDNISOLONE. [Suspect]
     Active Substance: METHYLPREDNISOLONE
     Dosage: 360 MG, QD
     Route: 065
     Dates: start: 20160323, end: 20160323
  33. METHYLPREDNISOLONE. [Suspect]
     Active Substance: METHYLPREDNISOLONE
     Dosage: 500 MG, QD
     Route: 065
     Dates: start: 20160324, end: 20160325
  34. HEPATITIS B IMMUNE GLOBULIN [Concomitant]
     Active Substance: HUMAN HEPATITIS B VIRUS IMMUNE GLOBULIN
     Indication: ANTIVIRAL PROPHYLAXIS
     Dosage: 400 IU, QD
     Route: 030
     Dates: start: 20160319, end: 20160326
  35. INSULIN [Concomitant]
     Active Substance: INSULIN NOS
     Indication: BLOOD GLUCOSE INCREASED
     Dosage: 8 IU, Q6H
     Route: 042
     Dates: start: 20160319, end: 20160325
  36. PAPAVERINE HYDROCHLORIDE. [Concomitant]
     Active Substance: PAPAVERINE HYDROCHLORIDE
     Indication: ANALGESIC THERAPY
     Dosage: 60 MG, Q12H
     Route: 042
     Dates: start: 20160320, end: 20160327
  37. ESTAZOLAMUM [Concomitant]
     Dosage: 2 MG, PRN
     Route: 048
     Dates: start: 20160327, end: 20160327
  38. GANCICLOVIR. [Concomitant]
     Active Substance: GANCICLOVIR
     Dosage: 250 MG, QD INJECTION
     Route: 042
     Dates: start: 20160412, end: 20160423
  39. GANCICLOVIR. [Concomitant]
     Active Substance: GANCICLOVIR
     Dosage: 250 MG, BID INJECTION
     Route: 042
     Dates: start: 20160618, end: 20160630
  40. POTASSIUM CHLORIDE. [Concomitant]
     Active Substance: POTASSIUM CHLORIDE
     Dosage: 1 G, TID (TABLET)
     Route: 048
     Dates: start: 20160618, end: 20160630
  41. NICARDIPINE [Concomitant]
     Active Substance: NICARDIPINE
     Indication: BLOOD PRESSURE MEASUREMENT
     Dosage: 2 MG, ST
     Route: 042
     Dates: start: 20160323, end: 20160323
  42. CEFOPERAZONE [Concomitant]
     Active Substance: CEFOPERAZONE
     Dosage: 3 G, QD
     Route: 042
     Dates: start: 20160618, end: 20160701
  43. TEICOPLANIN [Concomitant]
     Active Substance: TEICOPLANIN
     Dosage: 0.4 G, QD
     Route: 042
     Dates: start: 20160415, end: 20160420
  44. ERYTHROPOIETIN [Concomitant]
     Active Substance: ERYTHROPOIETIN
     Indication: RED BLOOD CELL COUNT DECREASED
     Dosage: 10000 U, QD
     Route: 058
     Dates: start: 20160411, end: 20160411
  45. MYFORTIC [Suspect]
     Active Substance: MYCOPHENOLATE SODIUM
     Dosage: 1080 MG, QD
     Route: 065
     Dates: start: 20160422, end: 20160422
  46. BASILIXIMAB [Suspect]
     Active Substance: BASILIXIMAB
     Dosage: 40 MG, QD
     Route: 065
     Dates: start: 20160322, end: 20160322
  47. PREDNISONE. [Suspect]
     Active Substance: PREDNISONE
     Indication: RENAL TRANSPLANT
     Dosage: 5 MG, QD
     Route: 065
     Dates: start: 20160322, end: 20160322
  48. PREDNISONE. [Suspect]
     Active Substance: PREDNISONE
     Dosage: 20 MG, QD
     Route: 065
     Dates: start: 20160323, end: 20160429
  49. TACROLIMUS. [Suspect]
     Active Substance: TACROLIMUS
     Dosage: 6 MG, QD
     Route: 065
     Dates: start: 20160320, end: 20160324
  50. TACROLIMUS. [Suspect]
     Active Substance: TACROLIMUS
     Dosage: 2 MG, QD
     Route: 065
     Dates: start: 20160328, end: 20160328
  51. TACROLIMUS. [Suspect]
     Active Substance: TACROLIMUS
     Dosage: 4.5 MG, QD
     Route: 065
     Dates: start: 20160415, end: 20160415
  52. TACROLIMUS. [Suspect]
     Active Substance: TACROLIMUS
     Dosage: 3 MG, QD
     Route: 065
     Dates: start: 20160713, end: 20160717
  53. BERBERINE HYDROCHLORIDE [Concomitant]
     Active Substance: BERBERINE
     Indication: DIARRHOEA
     Dosage: 0.2 G, TID
     Route: 048
     Dates: start: 20160327, end: 20160411
  54. INSULIN [Concomitant]
     Active Substance: INSULIN NOS
     Dosage: 10 IU, QD
     Route: 042
     Dates: start: 20160329, end: 20160329
  55. METOPROLOL. [Concomitant]
     Active Substance: METOPROLOL
     Indication: HYPERTENSION
     Dosage: 47.5 MG, QD
     Route: 048
     Dates: start: 20160328, end: 20160704
  56. PANTOPRAZOLE [Concomitant]
     Active Substance: PANTOPRAZOLE
     Dosage: 80 MG, BID
     Route: 042
     Dates: start: 20160327, end: 20160328
  57. PHENTOLAMINE [Concomitant]
     Active Substance: PHENTOLAMINE
     Dosage: 20 MG, Q12H
     Route: 042
     Dates: start: 20160320, end: 20160327
  58. PIPERACILLIN AND TAZOBACTAM [Concomitant]
     Active Substance: PIPERACILLIN SODIUM\TAZOBACTAM SODIUM
     Dosage: 2.5 G, BID
     Route: 042
     Dates: start: 20160327, end: 20160328
  59. CALCITRIOL. [Concomitant]
     Active Substance: CALCITRIOL
     Indication: SUPPLEMENTATION THERAPY
     Dosage: 0.25 UG, BID
     Route: 048
     Dates: start: 20160412, end: 20160412
  60. POTASSIUM CHLORIDE. [Concomitant]
     Active Substance: POTASSIUM CHLORIDE
     Dosage: 30 ML, QD INJECTION
     Route: 042
     Dates: start: 20160328, end: 20160328
  61. SODIUM BICARBONATE. [Concomitant]
     Active Substance: SODIUM BICARBONATE
     Indication: ANTACID THERAPY
     Dosage: 250 ML, QD
     Route: 042
     Dates: start: 20160407, end: 20160407
  62. SODIUM BICARBONATE. [Concomitant]
     Active Substance: SODIUM BICARBONATE
     Dosage: 250 ML, QD
     Route: 042
     Dates: start: 20160409, end: 20160409
  63. TEICOPLANIN [Concomitant]
     Active Substance: TEICOPLANIN
     Indication: INFECTION
     Dosage: 0.4 G, QD
     Route: 042
     Dates: start: 20160413, end: 20160413
  64. SMECTITE [Concomitant]
     Active Substance: MONTMORILLONITE
     Indication: DIARRHOEA
     Dosage: 3 G, TID
     Route: 048
     Dates: start: 20160327, end: 20160327
  65. MYFORTIC [Suspect]
     Active Substance: MYCOPHENOLATE SODIUM
     Dosage: 1080 MG, QD
     Route: 065
     Dates: start: 20160417, end: 20160417
  66. MYFORTIC [Suspect]
     Active Substance: MYCOPHENOLATE SODIUM
     Dosage: 360 MG, QD
     Route: 065
     Dates: start: 20160717, end: 20170329
  67. BASILIXIMAB [Suspect]
     Active Substance: BASILIXIMAB
     Indication: RENAL TRANSPLANT
     Dosage: 40 MG, QD
     Route: 065
     Dates: start: 20160319, end: 20160319
  68. PREDNISONE. [Suspect]
     Active Substance: PREDNISONE
     Dosage: 5 MG, QD
     Route: 065
     Dates: start: 20160420, end: 20160420
  69. PREDNISONE. [Suspect]
     Active Substance: PREDNISONE
     Dosage: 15 MG, QD
     Route: 065
     Dates: start: 20160430, end: 20160506
  70. AMBROXOL HYDROCHLORIDE [Concomitant]
     Active Substance: AMBROXOL HYDROCHLORIDE
     Indication: PROPHYLAXIS
     Dosage: 15 MG, BID
     Route: 042
     Dates: start: 20160319, end: 20160401
  71. COENZYME [Concomitant]
     Active Substance: UBIDECARENONE
     Dosage: 10 MG, QD
     Route: 042
     Dates: start: 20160327, end: 20160328
  72. FUROSEMIDE. [Concomitant]
     Active Substance: FUROSEMIDE
     Dosage: 40 MG, QD
     Route: 042
     Dates: start: 20160321, end: 20160321
  73. INSULIN [Concomitant]
     Active Substance: INSULIN NOS
     Dosage: 6 IU, QD
     Route: 042
     Dates: start: 20160403, end: 20160405
  74. MOSAPRIDE [Concomitant]
     Active Substance: MOSAPRIDE
     Dosage: 5 MG, TID
     Route: 048
     Dates: start: 20160323, end: 20160408
  75. PHENTOLAMINE [Concomitant]
     Active Substance: PHENTOLAMINE
     Indication: CARDIOVASCULAR INSUFFICIENCY
     Dosage: 20 MG, Q12H
     Route: 042
     Dates: start: 20160319, end: 20160320
  76. PIPERACILLIN AND TAZOBACTAM [Concomitant]
     Active Substance: PIPERACILLIN SODIUM\TAZOBACTAM SODIUM
     Indication: INFECTION PROPHYLAXIS
     Dosage: 2.5 G, BID
     Route: 042
     Dates: start: 20160319, end: 20160327
  77. VORICONAZOLE. [Concomitant]
     Active Substance: VORICONAZOLE
     Indication: INFECTION
     Dosage: 0.2 G, BID
     Route: 042
     Dates: start: 20160618, end: 20160705
  78. GLYCERIN. [Concomitant]
     Active Substance: GLYCERIN
     Dosage: 110 ML, QD
     Route: 054
     Dates: start: 20160320, end: 20160320
  79. GANCICLOVIR. [Concomitant]
     Active Substance: GANCICLOVIR
     Dosage: 300 MG, BID INJECTION
     Route: 042
     Dates: start: 20160709, end: 20160711
  80. POTASSIUM CHLORIDE. [Concomitant]
     Active Substance: POTASSIUM CHLORIDE
     Dosage: 2 G, TID TABLET
     Route: 048
     Dates: start: 20160401, end: 20160411
  81. CALCIUM [Concomitant]
     Active Substance: CALCIUM
     Indication: MINERAL SUPPLEMENTATION
     Dosage: 1 G, Q6H
     Route: 042
     Dates: start: 20160319, end: 20160320
  82. TACROLIMUS. [Suspect]
     Active Substance: TACROLIMUS
     Dosage: 8 MG, QD
     Route: 065
     Dates: start: 20160326, end: 20160327
  83. TACROLIMUS. [Suspect]
     Active Substance: TACROLIMUS
     Dosage: 4 MG, QD
     Route: 065
     Dates: start: 20160715, end: 20160717
  84. CEFOSELIS SULFATE [Concomitant]
     Active Substance: CEFOSELIS SULFATE
     Indication: INFECTION PROPHYLAXIS
     Dosage: 1.5 G, BID
     Route: 042
     Dates: start: 20160328, end: 20160406
  85. CEFOSELIS SULFATE [Concomitant]
     Active Substance: CEFOSELIS SULFATE
     Dosage: 1.5 G, BID
     Route: 042
     Dates: start: 20160420, end: 20160423
  86. DILTIAZEM HYDROCHLORIDE. [Concomitant]
     Active Substance: DILTIAZEM HYDROCHLORIDE
     Dosage: 90 MG, QD
     Route: 048
     Dates: start: 20160405, end: 20160405
  87. FUROSEMIDE. [Concomitant]
     Active Substance: FUROSEMIDE
     Dosage: 20 MG, Q6H
     Route: 042
     Dates: start: 20160401, end: 20160414
  88. MOSAPRIDE [Concomitant]
     Active Substance: MOSAPRIDE
     Indication: GASTROINTESTINAL DISORDER
     Dosage: 5 MG, TID
     Route: 048
     Dates: start: 20160323, end: 20160323
  89. NIFEDIPINE. [Concomitant]
     Active Substance: NIFEDIPINE
     Dosage: 30 MG, QD
     Route: 048
     Dates: start: 20160322, end: 20160322
  90. TORASEMIDE [Concomitant]
     Active Substance: TORSEMIDE
     Indication: POLYURIA
     Dosage: 20 MG, Q8H
     Route: 042
     Dates: start: 20160322, end: 20160401
  91. OLANZAPINE. [Concomitant]
     Active Substance: OLANZAPINE
     Indication: SEDATION
     Dosage: 10 MG, QD
     Route: 048
     Dates: start: 20160403, end: 20160403
  92. OLANZAPINE. [Concomitant]
     Active Substance: OLANZAPINE
     Dosage: 10 MG, QD
     Route: 048
     Dates: start: 20160403, end: 20160414
  93. GLYCERIN. [Concomitant]
     Active Substance: GLYCERIN
     Indication: PRODUCT USED FOR UNKNOWN INDICATION
     Dosage: 110 ML, QD
     Route: 054
     Dates: start: 20160319, end: 20160319
  94. HEPARIN [Concomitant]
     Active Substance: HEPARIN SODIUM
     Indication: COAGULOPATHY
     Dosage: 12500 U, TID
     Route: 042
     Dates: start: 20160422, end: 20160422
  95. POTASSIUM CHLORIDE. [Concomitant]
     Active Substance: POTASSIUM CHLORIDE
     Dosage: 0.5 G, TID TABLET
     Route: 048
     Dates: start: 20160409, end: 20160409
  96. NICARDIPINE [Concomitant]
     Active Substance: NICARDIPINE
     Dosage: 10 MG, ST
     Route: 042
     Dates: start: 20160325, end: 20160325
  97. IMIPENEM [Concomitant]
     Active Substance: IMIPENEM
     Indication: PROPHYLAXIS
     Dosage: 500 MG, Q8H
     Route: 042
     Dates: start: 20160413, end: 20160420
  98. CALCIUM [Concomitant]
     Active Substance: CALCIUM
     Dosage: 1 G, Q6H
     Route: 042
     Dates: start: 20160320, end: 20160325
  99. MYFORTIC [Suspect]
     Active Substance: MYCOPHENOLATE SODIUM
     Indication: RENAL TRANSPLANT
     Dosage: 720 MG, QD
     Route: 065
     Dates: start: 20160319, end: 20160319
  100. MYFORTIC [Suspect]
     Active Substance: MYCOPHENOLATE SODIUM
     Dosage: 1440 MG, QD
     Route: 065
     Dates: start: 20160321, end: 20160328
  101. TACROLIMUS. [Suspect]
     Active Substance: TACROLIMUS
     Dosage: 7 MG, QD
     Route: 065
     Dates: start: 20160406, end: 20160406
  102. METHYLPREDNISOLONE. [Suspect]
     Active Substance: METHYLPREDNISOLONE
     Dosage: 300 MG, QD
     Route: 065
     Dates: start: 20160329, end: 20160331
  103. DILTIAZEM HYDROCHLORIDE. [Concomitant]
     Active Substance: DILTIAZEM HYDROCHLORIDE
     Indication: HYPERTENSION
     Dosage: 90 MG, BID
     Route: 048
     Dates: start: 20160325, end: 20160325
  104. DILTIAZEM HYDROCHLORIDE. [Concomitant]
     Active Substance: DILTIAZEM HYDROCHLORIDE
     Dosage: 90 MG, QD
     Route: 048
     Dates: start: 20160412, end: 20160412
  105. DILTIAZEM HYDROCHLORIDE. [Concomitant]
     Active Substance: DILTIAZEM HYDROCHLORIDE
     Dosage: 90 MG, QD
     Route: 048
     Dates: start: 20160420, end: 20160420
  106. DILTIAZEM HYDROCHLORIDE. [Concomitant]
     Active Substance: DILTIAZEM HYDROCHLORIDE
     Dosage: 90 MG, QD
     Route: 048
     Dates: start: 20160422, end: 20160422
  107. DILTIAZEM HYDROCHLORIDE. [Concomitant]
     Active Substance: DILTIAZEM HYDROCHLORIDE
     Dosage: 90 MG, BID
     Route: 048
     Dates: start: 20160718, end: 20160720
  108. FUROSEMIDE. [Concomitant]
     Active Substance: FUROSEMIDE
     Indication: PROPHYLAXIS
     Dosage: 20 MG, QD
     Route: 042
     Dates: start: 20160319, end: 20160319
  109. NIFEDIPINE. [Concomitant]
     Active Substance: NIFEDIPINE
     Indication: HYPERTENSION
     Dosage: 30 MG, QD
     Route: 048
     Dates: start: 20160320, end: 20160320
  110. NIFEDIPINE. [Concomitant]
     Active Substance: NIFEDIPINE
     Dosage: 30 MG, QD
     Route: 048
     Dates: start: 20160326, end: 20160327
  111. NIFEDIPINE. [Concomitant]
     Active Substance: NIFEDIPINE
     Dosage: 30 MG, BID
     Route: 048
     Dates: start: 20160327, end: 20160331
  112. ESTAZOLAMUM [Concomitant]
     Indication: SEDATION
     Dosage: 2 MG, PRN
     Route: 048
     Dates: start: 20160325, end: 20160325
  113. DIAZEPAM. [Concomitant]
     Active Substance: DIAZEPAM
     Indication: SEDATION
     Dosage: 10 MG, QD
     Route: 042
     Dates: start: 20160330, end: 20160330
  114. DIAZEPAM. [Concomitant]
     Active Substance: DIAZEPAM
     Dosage: 5 MG, QD
     Route: 042
     Dates: start: 20160401, end: 20160401
  115. FLUCONAZOLE. [Concomitant]
     Active Substance: FLUCONAZOLE
     Indication: INFECTION
     Dosage: 100 ML, QD
     Route: 042
     Dates: start: 20160705, end: 20160711
  116. POTASSIUM CHLORIDE. [Concomitant]
     Active Substance: POTASSIUM CHLORIDE
     Indication: MINERAL SUPPLEMENTATION
     Dosage: 30 ML, ST INJECTION
     Route: 042
     Dates: start: 20160321, end: 20160321
  117. MYFORTIC [Suspect]
     Active Substance: MYCOPHENOLATE SODIUM
     Dosage: 720 MG, QD
     Route: 065
     Dates: start: 20160423, end: 20160618
  118. PREDNISONE. [Suspect]
     Active Substance: PREDNISONE
     Dosage: 15 MG, QD
     Route: 065
     Dates: start: 20160629, end: 20160721
  119. TACROLIMUS. [Suspect]
     Active Substance: TACROLIMUS
     Dosage: 6 MG, QD
     Route: 065
     Dates: start: 20160408, end: 20160412
  120. METHYLPREDNISOLONE. [Suspect]
     Active Substance: METHYLPREDNISOLONE
     Dosage: 250 MG, QD
     Route: 065
     Dates: start: 20160322, end: 20160322
  121. DILTIAZEM HYDROCHLORIDE. [Concomitant]
     Active Substance: DILTIAZEM HYDROCHLORIDE
     Dosage: 90 MG, BID
     Route: 048
     Dates: start: 20160330, end: 20160423
  122. DILTIAZEM HYDROCHLORIDE. [Concomitant]
     Active Substance: DILTIAZEM HYDROCHLORIDE
     Dosage: 90 MG, QD
     Route: 048
     Dates: start: 20160331, end: 20160331
  123. FUROSEMIDE. [Concomitant]
     Active Substance: FUROSEMIDE
     Dosage: 20 MG, BID
     Route: 042
     Dates: start: 20160322, end: 20160401
  124. INSULIN [Concomitant]
     Active Substance: INSULIN NOS
     Dosage: 18 IU, QD
     Route: 042
     Dates: start: 20160402, end: 20160402
  125. LACTULOSE. [Concomitant]
     Active Substance: LACTULOSE
     Indication: DIARRHOEA
     Dosage: 15 ML, TID
     Route: 048
     Dates: start: 20160321, end: 20160322
  126. PANTOPRAZOLE [Concomitant]
     Active Substance: PANTOPRAZOLE
     Indication: PROPHYLAXIS
     Dosage: 80 MG, BID
     Route: 042
     Dates: start: 20160319, end: 20160327
  127. SULFAMETHOXAZOLE [Concomitant]
     Active Substance: SULFAMETHOXAZOLE
     Indication: INFECTION
     Dosage: 0.96 MG, TID
     Route: 048
     Dates: start: 20160704, end: 20160720
  128. LANSOPRAZOLE. [Concomitant]
     Active Substance: LANSOPRAZOLE
     Indication: PROPHYLAXIS
     Dosage: 30 MG, QD
     Route: 042
     Dates: start: 20160319, end: 20160319
  129. POTASSIUM CHLORIDE. [Concomitant]
     Active Substance: POTASSIUM CHLORIDE
     Dosage: 30 ML, QD (INJECTION)
     Route: 042
     Dates: start: 20160401, end: 20160401
  130. NICARDIPINE [Concomitant]
     Active Substance: NICARDIPINE
     Dosage: 10 MG, ST
     Route: 042
     Dates: start: 20160323, end: 20160323
  131. SODIUM BICARBONATE. [Concomitant]
     Active Substance: SODIUM BICARBONATE
     Dosage: 250 ML, QD
     Route: 042
     Dates: start: 20160411, end: 20160411
  132. SODIUM BICARBONATE. [Concomitant]
     Active Substance: SODIUM BICARBONATE
     Dosage: 250 ML, QD
     Route: 042
     Dates: start: 20160618, end: 20160618
  133. LEVOFLOXACIN. [Concomitant]
     Active Substance: LEVOFLOXACIN
     Indication: PROPHYLAXIS
     Dosage: 0.2 G, BID
     Route: 042
     Dates: start: 20160406, end: 20160413
  134. CALCIUM [Concomitant]
     Active Substance: CALCIUM
     Dosage: 1 G, QD
     Route: 042
     Dates: start: 20160411, end: 20160411
  135. MYFORTIC [Suspect]
     Active Substance: MYCOPHENOLATE SODIUM
     Dosage: 1080 MG, QD
     Route: 065
     Dates: start: 20160402, end: 20160402
  136. PREDNISONE. [Suspect]
     Active Substance: PREDNISONE
     Dosage: 10 MG, QD
     Route: 065
     Dates: start: 20160507, end: 20160628
  137. TACROLIMUS. [Suspect]
     Active Substance: TACROLIMUS
     Dosage: 5 MG, QD
     Route: 065
     Dates: start: 20160328, end: 20160328
  138. TACROLIMUS. [Suspect]
     Active Substance: TACROLIMUS
     Dosage: 4 MG, QD
     Route: 065
     Dates: start: 20160416, end: 20160623
  139. TACROLIMUS. [Suspect]
     Active Substance: TACROLIMUS
     Dosage: 3 MG, QD
     Route: 065
     Dates: start: 20160718, end: 20160719
  140. TACROLIMUS. [Suspect]
     Active Substance: TACROLIMUS
     Dosage: 4 MG, QD
     Route: 065
     Dates: start: 20160720, end: 20170329
  141. METHYLPREDNISOLONE. [Suspect]
     Active Substance: METHYLPREDNISOLONE
     Indication: PRODUCT USED FOR UNKNOWN INDICATION
     Dosage: 500 MG, QD
     Route: 065
     Dates: start: 20160319, end: 20160321
  142. AMLODIPINE BESYLATE. [Concomitant]
     Active Substance: AMLODIPINE BESYLATE
     Indication: HYPERTENSION
     Dosage: 5 MG, QD
     Route: 048
     Dates: start: 20160328, end: 20160331
  143. FUROSEMIDE. [Concomitant]
     Active Substance: FUROSEMIDE
     Dosage: 20 MG, QD
     Route: 042
     Dates: start: 20160320, end: 20160320
  144. OMEPRAZOLE. [Concomitant]
     Active Substance: OMEPRAZOLE
     Indication: PROPHYLAXIS
     Dosage: 20 MG, QD
     Route: 048
     Dates: start: 20160328, end: 20160423
  145. OMEPRAZOLE. [Concomitant]
     Active Substance: OMEPRAZOLE
     Dosage: 20 MG, QD
     Route: 048
     Dates: start: 20160409, end: 20160409
  146. TORASEMIDE [Concomitant]
     Active Substance: TORSEMIDE
     Indication: POLYURIA
     Dosage: 20 MG, BID
     Route: 042
     Dates: start: 20160401
  147. ALBUMIN HUMAN [Concomitant]
     Active Substance: ALBUMIN HUMAN
     Indication: VOLUME BLOOD DECREASED
     Dosage: 100 ML, QD
     Route: 042
     Dates: start: 20160319, end: 20160326
  148. GLYCERIN. [Concomitant]
     Active Substance: GLYCERIN
     Dosage: 110 ML, QD
     Route: 054
     Dates: start: 20160321, end: 20160321
  149. TALCID [Concomitant]
     Active Substance: HYDROTALCITE
     Indication: PROPHYLAXIS
     Dosage: 0.5 G, QD
     Route: 048
     Dates: start: 20160408, end: 20160408
  150. NICARDIPINE [Concomitant]
     Active Substance: NICARDIPINE
     Dosage: 10 MG, ST
     Route: 042
     Dates: start: 20160326, end: 20160326
  151. CEFTAZIDIME. [Concomitant]
     Active Substance: CEFTAZIDIME
     Indication: INFECTION
     Dosage: 2 MG, BID
     Route: 042
     Dates: start: 20160705, end: 20160711
  152. CALCIUM [Concomitant]
     Active Substance: CALCIUM
     Dosage: 1 G, ST
     Route: 042
     Dates: start: 20160407, end: 20160407
  153. SMECTITE [Concomitant]
     Active Substance: MONTMORILLONITE
     Dosage: 3 G, TID
     Route: 048
     Dates: start: 20160410, end: 20160410

REACTIONS (7)
  - Blood urea increased [Unknown]
  - Haemoglobin decreased [Unknown]
  - Neutrophil count increased [Unknown]
  - Platelet count decreased [Unknown]
  - Blood glucose increased [Recovering/Resolving]
  - Lymphocyte count decreased [Unknown]
  - White blood cell count decreased [Unknown]

NARRATIVE: CASE EVENT DATE: 20160325
